FAERS Safety Report 9321056 (Version 1)
Quarter: 2013Q2

REPORT INFORMATION
  Report Type: Spontaneous
  Country: US (occurrence: None)
  Receive Date: 20130528
  Receipt Date: 20130528
  Transmission Date: 20140414
  Serious: Yes (Disabling)
  Sender: FDA-Public Use
  Company Number: 2011AP002650

PATIENT
  Age: 32 Year
  Sex: Female

DRUGS (1)
  1. FERRIPROX [Suspect]
     Indication: CARDIAC SIDEROSIS
     Route: 048
     Dates: start: 20091013, end: 20110520

REACTIONS (3)
  - Diplopia [None]
  - Myoclonus [None]
  - Visual impairment [None]
